FAERS Safety Report 9611615 (Version 1)
Quarter: 2013Q4

REPORT INFORMATION
  Report Type: Spontaneous
  Country: FR (occurrence: FR)
  Receive Date: 20131010
  Receipt Date: 20131010
  Transmission Date: 20140711
  Serious: Yes (Life-Threatening, Hospitalization)
  Sender: FDA-Public Use
  Company Number: FR-CELGENEUS-056-21880-13094407

PATIENT
  Age: 79 Year
  Sex: Male

DRUGS (11)
  1. REVLIMID [Suspect]
     Indication: PLASMA CELL MYELOMA
     Dosage: 10 MILLIGRAM
     Route: 048
     Dates: start: 2009, end: 201104
  2. DEXAMETHASONE [Suspect]
     Indication: PLASMA CELL MYELOMA
     Route: 065
     Dates: start: 2009, end: 201204
  3. DEXAMETHASONE [Suspect]
     Route: 065
     Dates: start: 201208, end: 201301
  4. VELCADE [Concomitant]
     Indication: PLASMA CELL MYELOMA
     Route: 065
     Dates: start: 201104, end: 201204
  5. VELCADE [Concomitant]
     Route: 065
     Dates: start: 201208
  6. MELPHALAN [Concomitant]
     Indication: PLASMA CELL MYELOMA
     Route: 065
     Dates: start: 2004, end: 2009
  7. MELPHALAN [Concomitant]
     Route: 065
     Dates: start: 201301
  8. PREDNISONE [Concomitant]
     Indication: PLASMA CELL MYELOMA
     Route: 065
     Dates: start: 2004, end: 2009
  9. PREDNISONE [Concomitant]
     Route: 065
     Dates: start: 201301
  10. TRITACE [Concomitant]
     Indication: HYPERTENSION
     Route: 065
  11. ZYLORIC [Concomitant]
     Indication: HYPERURICAEMIA
     Route: 065

REACTIONS (1)
  - Adenocarcinoma of colon [Not Recovered/Not Resolved]
